FAERS Safety Report 5662232-4 (Version None)
Quarter: 2008Q1

REPORT INFORMATION
  Report Type: 
  Country: None (occurrence: None)
  Receive Date: 20080312
  Receipt Date: 20080303
  Transmission Date: 20080703
  Serious: Yes (Other)
  Sender: FDA-Public Use
  Company Number: US-PFIZER INC-2007030659

PATIENT
  Sex: Male

DRUGS (2)
  1. CELEBREX [Suspect]
     Route: 048
     Dates: start: 20000825, end: 20010601
  2. BEXTRA [Suspect]
     Route: 048
     Dates: start: 20030326

REACTIONS (1)
  - CEREBROVASCULAR ACCIDENT [None]
